FAERS Safety Report 20993909 (Version 4)
Quarter: 2024Q1

REPORT INFORMATION
  Report Type: Spontaneous
  Country: US (occurrence: US)
  Receive Date: 20220622
  Receipt Date: 20240219
  Transmission Date: 20240410
  Serious: No
  Sender: FDA-Public Use
  Company Number: US-CTI BIOPHARMA-2022US02809

PATIENT

DRUGS (8)
  1. VONJO [Suspect]
     Active Substance: PACRITINIB
     Indication: Myelofibrosis
     Dosage: 200 MILLIGRAM, BID
     Route: 048
     Dates: start: 20220418
  2. VONJO [Suspect]
     Active Substance: PACRITINIB
     Dosage: 100 MILLIGRAM, BID, (TWO PILLS A DAY)
  3. VONJO [Suspect]
     Active Substance: PACRITINIB
     Dosage: 100 MILLIGRAM, BID, (TWO PILLS A DAY)
     Dates: start: 20220418
  4. VONJO [Suspect]
     Active Substance: PACRITINIB
     Dosage: 100 MILLIGRAM, BID, (TWO PILLS A DAY)
     Dates: start: 20220418
  5. BRIMONIDINE [Concomitant]
     Active Substance: BRIMONIDINE TARTRATE
  6. PILOCARPINE [Concomitant]
     Active Substance: PILOCARPINE
  7. TIMOLOL [Concomitant]
     Active Substance: TIMOLOL
  8. XALATAN [Concomitant]
     Active Substance: LATANOPROST

REACTIONS (16)
  - Blindness [Unknown]
  - Product dose omission issue [Unknown]
  - Malaise [Unknown]
  - Lymphadenopathy [Unknown]
  - Ear infection [Unknown]
  - Abdominal discomfort [Unknown]
  - Hiccups [Unknown]
  - Gastrointestinal disorder [Unknown]
  - Transfusion [Unknown]
  - Full blood count abnormal [Unknown]
  - Therapy change [Unknown]
  - Feeling abnormal [Unknown]
  - Full blood count increased [Unknown]
  - Pyrexia [Unknown]
  - Nausea [Unknown]
  - Diarrhoea [Unknown]

NARRATIVE: CASE EVENT DATE: 20220912
